FAERS Safety Report 7798537-0 (Version None)
Quarter: 2011Q4

REPORT INFORMATION
  Report Type: 
  Country: None (occurrence: None)
  Receive Date: 20111005
  Receipt Date: 20110926
  Transmission Date: 20120403
  Serious: Yes (Other)
  Sender: FDA-Public Use
  Company Number: US-ASTRAZENECA-2011SE57981

PATIENT
  Age: 53 Year
  Sex: Female

DRUGS (4)
  1. NEXIUM [Suspect]
     Route: 048
  2. WELLBUTRIN [Concomitant]
  3. CRESTOR [Suspect]
     Route: 048
  4. SEROQUEL [Suspect]
     Route: 048

REACTIONS (5)
  - CRUSH INJURY [None]
  - DRUG DOSE OMISSION [None]
  - THINKING ABNORMAL [None]
  - FALL [None]
  - ANKLE FRACTURE [None]
